FAERS Safety Report 10425376 (Version 1)
Quarter: 2014Q3

REPORT INFORMATION
  Report Type: Spontaneous
  Country: SG (occurrence: SG)
  Receive Date: 20140902
  Receipt Date: 20140902
  Transmission Date: 20150326
  Serious: Yes (Other)
  Sender: FDA-Public Use
  Company Number: SG-009507513-1409SGP000072

PATIENT
  Age: 29 Year
  Sex: Female

DRUGS (1)
  1. CLARITYNE [Suspect]
     Active Substance: LORATADINE
     Route: 048

REACTIONS (1)
  - Anaphylactic reaction [Unknown]

NARRATIVE: CASE EVENT DATE: 20140729
